FAERS Safety Report 22338236 (Version 1)
Quarter: 2023Q2

REPORT INFORMATION
  Report Type: Spontaneous
  Country: US (occurrence: None)
  Receive Date: 20230517
  Receipt Date: 20230517
  Transmission Date: 20230722
  Serious: Yes (Hospitalization)
  Sender: FDA-Public Use
  Company Number: None

PATIENT
  Age: 64 Year
  Sex: Female

DRUGS (16)
  1. CIMZIA [Suspect]
     Active Substance: CERTOLIZUMAB PEGOL
     Indication: Rheumatoid arthritis
     Dosage: 6 X 200 MG/ML SUBCUTANEOUS? ?RX1: INJECT 2 SYRINGES UNDER THE SKIN (SUBCUTANEOUS INJECTION) AT WEEK
     Route: 058
     Dates: start: 20221025
  2. ALPRAZOLAM [Concomitant]
  3. AMLODIPINE [Concomitant]
     Active Substance: AMLODIPINE BESYLATE
  4. CYCLOBENZAPRINE [Concomitant]
     Active Substance: CYCLOBENZAPRINE
  5. DICLOFENAC [Concomitant]
  6. DULOXETINE [Concomitant]
     Active Substance: DULOXETINE
  7. ENALAPRIL [Concomitant]
     Active Substance: ENALAPRIL
  8. HYDROCO/APAP [Concomitant]
  9. LEFLUNOMIDE [Concomitant]
     Active Substance: LEFLUNOMIDE
  10. OMEPRAZOLE [Concomitant]
     Active Substance: OMEPRAZOLE
  11. ORENCIA CLCK [Concomitant]
  12. OXYCODONE AND ACETAMINOPHEN [Concomitant]
     Active Substance: ACETAMINOPHEN\OXYCODONE HYDROCHLORIDE
  13. PREDNISONE [Concomitant]
     Active Substance: PREDNISONE
  14. PREGABALIN [Concomitant]
     Active Substance: PREGABALIN
  15. TIZANIDINE [Concomitant]
     Active Substance: TIZANIDINE
  16. TRAMADOL HCL [Concomitant]
     Active Substance: TRAMADOL HYDROCHLORIDE

REACTIONS (4)
  - Illness [None]
  - Therapy interrupted [None]
  - Loss of personal independence in daily activities [None]
  - Rheumatoid arthritis [None]

NARRATIVE: CASE EVENT DATE: 20230201
